FAERS Safety Report 6791405-2 (Version None)
Quarter: 2010Q2

REPORT INFORMATION
  Report Type: 
  Country: None (occurrence: None)
  Receive Date: 20100621
  Receipt Date: 20100615
  Transmission Date: 20101027
  Serious: Yes (Death, Life-Threatening)
  Sender: FDA-Public Use
  Company Number: 2010SP005160

PATIENT
  Age: 83 Year
  Sex: Female

DRUGS (5)
  1. ORGARAN [Suspect]
     Indication: HEPARIN-INDUCED THROMBOCYTOPENIA
     Dosage: SC:IV
     Route: 058
     Dates: start: 20091016, end: 20091017
  2. ORGARAN [Suspect]
     Indication: HEPARIN-INDUCED THROMBOCYTOPENIA
     Dosage: SC:IV
     Route: 058
     Dates: start: 20091019
  3. CALCIPARINE [Suspect]
     Dosage: SC
     Route: 058
     Dates: start: 20091002, end: 20091014
  4. RISPERDAL [Concomitant]
  5. ACETAMINOPHEN [Concomitant]

REACTIONS (9)
  - ARTERIAL THROMBOSIS LIMB [None]
  - CEREBROVASCULAR ACCIDENT [None]
  - FALL [None]
  - GENERAL PHYSICAL HEALTH DETERIORATION [None]
  - LEUKOCYTOSIS [None]
  - MYDRIASIS [None]
  - NYSTAGMUS [None]
  - THROMBOCYTOPENIA [None]
  - THROMBOPHLEBITIS SUPERFICIAL [None]
